FAERS Safety Report 7316184-1 (Version None)
Quarter: 2011Q1

REPORT INFORMATION
  Report Type: 
  Country: None (occurrence: None)
  Receive Date: 20110225
  Receipt Date: 20110221
  Transmission Date: 20110831
  Serious: Yes (Other)
  Sender: FDA-Public Use
  Company Number: FR-CEPHALON-2011000835

PATIENT
  Age: 30 Year
  Sex: Female

DRUGS (7)
  1. ACTIQ [Suspect]
     Indication: PAIN
     Route: 002
  2. ACTIQ [Suspect]
     Route: 002
  3. ACTIQ [Suspect]
     Route: 002
  4. SKENAN [Concomitant]
     Dates: start: 20070101
  5. ACTIQ [Suspect]
     Indication: SPONDYLITIS
     Route: 002
     Dates: start: 20080801
  6. ACTISKENAN [Concomitant]
     Dates: start: 20070101
  7. FENTANYL-100 [Concomitant]
     Route: 062
     Dates: start: 20080801

REACTIONS (3)
  - AMNESIA [None]
  - DRUG DEPENDENCE [None]
  - DRUG PRESCRIBING ERROR [None]
